FAERS Safety Report 5087568-X (Version None)
Quarter: 2006Q3

REPORT INFORMATION
  Report Type: 
  Country: None (occurrence: None)
  Receive Date: 20060824
  Receipt Date: 20060816
  Transmission Date: 20061208
  Serious: Yes (Death, Other)
  Sender: FDA-Public Use
  Company Number: PHBS2006CH12380

PATIENT
  Age: 68 Year
  Sex: Male

DRUGS (2)
  1. MYCOPHENOLATE MOFETIL [Suspect]
     Indication: HEART TRANSPLANT
     Dosage: 1250 MG, BID
  2. CYCLOSPORINE [Suspect]
     Indication: HEART TRANSPLANT
     Dosage: 75 MG, BID

REACTIONS (9)
  - DIZZINESS [None]
  - ENCEPHALITIS [None]
  - EPSTEIN-BARR VIRUS INFECTION [None]
  - FALL [None]
  - HEART TRANSPLANT REJECTION [None]
  - MENINGOENCEPHALITIS BACTERIAL [None]
  - PNEUMONIA BACTERIAL [None]
  - PYREXIA [None]
  - SOMNOLENCE [None]
